FAERS Safety Report 14576785 (Version 1)
Quarter: 2018Q1

REPORT INFORMATION
  Report Type: Spontaneous
  Country: US (occurrence: US)
  Receive Date: 20180224
  Receipt Date: 20180224
  Transmission Date: 20180509
  Serious: No
  Sender: FDA-Public Use
  Company Number: None

PATIENT
  Age: 64 Year
  Sex: Female

DRUGS (1)
  1. KISQALI FEMARA CO-PACK [Suspect]
     Active Substance: LETROZOLE\RIBOCICLIB
     Dosage: DOSE - 600MG/2.5MG?FREQUENCY - 3QD FOR 21 DAYS
     Route: 048
     Dates: start: 20180221

REACTIONS (2)
  - Respiratory disorder [None]
  - Hypertension [None]

NARRATIVE: CASE EVENT DATE: 20180222
